FAERS Safety Report 5389286-7 (Version None)
Quarter: 2007Q3

REPORT INFORMATION
  Report Type: 
  Country: None (occurrence: None)
  Receive Date: 20070713
  Receipt Date: 20070703
  Transmission Date: 20080115
  Serious: Yes (Other)
  Sender: FDA-Public Use
  Company Number: PHEH2007US09660

PATIENT
  Age: 56 Year
  Sex: Female

DRUGS (2)
  1. LAMISIL AT [Suspect]
     Indication: TINEA PEDIS
     Dosage: ONCE/SINGLE, TOPICAL
     Route: 061
     Dates: start: 20070628
  2. LAMISIL AT [Suspect]
     Indication: TINEA PEDIS
     Dosage: ONCE/SINGLE, TOPICAL
     Route: 061
     Dates: start: 20070702

REACTIONS (4)
  - HYPERTENSION [None]
  - PARAESTHESIA [None]
  - SELF-MEDICATION [None]
  - TREATMENT NONCOMPLIANCE [None]
